FAERS Safety Report 7151048-8 (Version None)
Quarter: 2010Q4

REPORT INFORMATION
  Report Type: 
  Country: None (occurrence: None)
  Receive Date: 20101210
  Receipt Date: 20101202
  Transmission Date: 20110411
  Serious: Yes (Other)
  Sender: FDA-Public Use
  Company Number: B0688413A

PATIENT
  Sex: Male

DRUGS (2)
  1. PROPAFENONE HCL [Suspect]
     Indication: ATRIAL FLUTTER
     Dosage: 650MG ALTERNATE DAYS
     Route: 048
  2. WARFARIN SODIUM [Concomitant]
     Route: 065

REACTIONS (3)
  - CARDIAC ABLATION [None]
  - HEADACHE [None]
  - RHINITIS [None]
